FAERS Safety Report 8287488-3 (Version None)
Quarter: 2012Q2

REPORT INFORMATION
  Report Type: 
  Country: None (occurrence: None)
  Receive Date: 20120411
  Receipt Date: 20110331
  Transmission Date: 20120825
  Serious: Yes (Death)
  Sender: FDA-Public Use
  Company Number: B0710460A

PATIENT
  Age: 66 Year
  Sex: Male

DRUGS (4)
  1. FOSINOPRIL SODIUM [Suspect]
     Indication: PRODUCT USED FOR UNKNOWN INDICATION
  2. CEFUROXIME SODIUM (FORMULATION UNKNOWN) (GENERIC) (CEFUROXIME SODIUM) [Suspect]
     Indication: PRODUCT USED FOR UNKNOWN INDICATION
  3. SEVOFLURANE [Suspect]
     Indication: PRODUCT USED FOR UNKNOWN INDICATION
  4. HEPARIN [Suspect]
     Indication: PRODUCT USED FOR UNKNOWN INDICATION

REACTIONS (3)
  - HEPATIC NECROSIS [None]
  - HEPATOTOXICITY [None]
  - HEPATORENAL SYNDROME [None]
